FAERS Safety Report 7026934-X (Version None)
Quarter: 2010Q4

REPORT INFORMATION
  Report Type: 
  Country: None (occurrence: None)
  Receive Date: 20101004
  Receipt Date: 20100930
  Transmission Date: 20110411
  Serious: Yes (Hospitalization)
  Sender: FDA-Public Use
  Company Number: B0677048A

PATIENT
  Age: 87 Year
  Sex: Female

DRUGS (9)
  1. AUGMENTIN '125' [Suspect]
     Dosage: 3G PER DAY
     Route: 048
     Dates: start: 20100911, end: 20100914
  2. ARIXTRA [Concomitant]
     Route: 065
  3. DOLIPRANE [Concomitant]
     Route: 065
  4. ACETAMINOPHEN W/ PROPOXYPHENE HCL [Concomitant]
     Route: 065
  5. COZAAR [Concomitant]
     Dosage: 50MG UNKNOWN
     Route: 065
  6. PREDNISONE [Concomitant]
     Route: 065
  7. VASTAREL [Concomitant]
     Dosage: 35MG UNKNOWN
     Route: 065
  8. NEXIUM [Concomitant]
     Dosage: 20MG UNKNOWN
     Route: 065
  9. OROCAL [Concomitant]
     Route: 065

REACTIONS (5)
  - DERMATITIS EXFOLIATIVE [None]
  - HYPERTHERMIA [None]
  - PURPURA [None]
  - RASH MACULO-PAPULAR [None]
  - TOXIC SKIN ERUPTION [None]
